FAERS Safety Report 8298449-2 (Version None)
Quarter: 2012Q2

REPORT INFORMATION
  Report Type: 
  Country: None (occurrence: None)
  Receive Date: 20120417
  Receipt Date: 20120328
  Transmission Date: 20120825
  Serious: Yes (Other)
  Sender: FDA-Public Use
  Company Number: 2012040051

PATIENT
  Age: 43 Year
  Sex: Male

DRUGS (1)
  1. ZOLPIDEM [Suspect]
     Dosage: (10 MG), ORAL
     Route: 048

REACTIONS (5)
  - AUTOMATISM [None]
  - AMNESIA [None]
  - ATAXIA [None]
  - CONFUSIONAL STATE [None]
  - ACCIDENTAL EXPOSURE [None]
